FAERS Safety Report 5616708-6 (Version None)
Quarter: 2008Q1

REPORT INFORMATION
  Report Type: 
  Country: None (occurrence: None)
  Receive Date: 20080204
  Receipt Date: 20080122
  Transmission Date: 20080703
  Serious: Yes (Death)
  Sender: FDA-Public Use
  Company Number: A-CH2008-19235

PATIENT
  Age: 81 Year
  Sex: Female
  Weight: 72.9 kg

DRUGS (13)
  1. TRACLEER [Suspect]
     Indication: PULMONARY HYPERTENSION
     Dosage: 125 MG, BID; ORAL; 62.5 MG, ORAL
     Route: 048
     Dates: start: 20051129, end: 20051226
  2. TRACLEER [Suspect]
     Indication: PULMONARY HYPERTENSION
     Dosage: 125 MG, BID; ORAL; 62.5 MG, ORAL
     Route: 048
     Dates: start: 20051227, end: 20080107
  3. HALDOL SOLUTAB [Concomitant]
  4. MARCUMAR [Concomitant]
  5. GLUCOPHAGE [Concomitant]
  6. VIAGRA [Concomitant]
  7. DUOVENT (IPRATROPIUM BROMIDE, FENOTEROL HYDROBROMIDE) [Concomitant]
  8. SPIRIVA (TIOTROPIOUM BROMIDE) [Concomitant]
  9. SYMBICORT [Concomitant]
  10. SIPRALEXA (ESCITALOPRAM) [Concomitant]
  11. AVELOX [Concomitant]
  12. LORAMET (LORMETAZEPAM) [Concomitant]
  13. ATACAND [Concomitant]

REACTIONS (1)
  - PNEUMONIA [None]
